FAERS Safety Report 5914796-0 (Version None)
Quarter: 2008Q4

REPORT INFORMATION
  Report Type: 
  Country: None (occurrence: None)
  Receive Date: 20081010
  Receipt Date: 20081001
  Transmission Date: 20090506
  Serious: Yes (Death)
  Sender: FDA-Public Use
  Company Number: US-ROCHE-589099

PATIENT
  Sex: Male
  Weight: 74.4 kg

DRUGS (2)
  1. CAPECITABINE [Suspect]
     Route: 048
     Dates: start: 20080825
  2. GEMZAR [Concomitant]

REACTIONS (1)
  - DEATH [None]
